FAERS Safety Report 24698520 (Version 2)
Quarter: 2024Q4

REPORT INFORMATION
  Report Type: Spontaneous
  Country: US (occurrence: US)
  Receive Date: 20241204
  Receipt Date: 20241224
  Transmission Date: 20250115
  Serious: No
  Sender: Haleon PLC
  Company Number: US-HALEON-2212962

PATIENT
  Sex: Female

DRUGS (1)
  1. ROBITUSSIN LONG-ACTING COUGH SOFT CHEWS [Suspect]
     Active Substance: DEXTROMETHORPHAN HYDROBROMIDE
     Indication: Cough
     Dosage: EXPDATE:20260228

REACTIONS (2)
  - Retching [Unknown]
  - Drug ineffective [Unknown]
